FAERS Safety Report 21684061 (Version 2)
Quarter: 2023Q1

REPORT INFORMATION
  Report Type: Report from Study
  Country: US (occurrence: US)
  Receive Date: 20221205
  Receipt Date: 20230321
  Transmission Date: 20230417
  Serious: No
  Sender: FDA-Public Use
  Company Number: US-ABBVIE-4192661

PATIENT
  Sex: Female

DRUGS (1)
  1. HUMIRA [Suspect]
     Active Substance: ADALIMUMAB
     Indication: Rheumatoid arthritis
     Route: 058
     Dates: start: 202210, end: 202212

REACTIONS (5)
  - Urticaria [Unknown]
  - Chronic obstructive pulmonary disease [Unknown]
  - Rheumatoid arthritis [Unknown]
  - Pain [Unknown]
  - Pruritus [Unknown]
